FAERS Safety Report 4613367-6 (Version None)
Quarter: 2005Q1

REPORT INFORMATION
  Report Type: 
  Country: None (occurrence: None)
  Receive Date: 20050316
  Receipt Date: 20050228
  Transmission Date: 20050727
  Serious: Yes (Death)
  Sender: FDA-Public Use
  Company Number: S05-UKI-00427-01

PATIENT
  Age: 76 Year
  Sex: Female

DRUGS (2)
  1. CIPRALEX (ESCITALOPRAM) [Suspect]
  2. QUININE SULFATE [Concomitant]

REACTIONS (1)
  - CEREBROVASCULAR ACCIDENT [None]
